FAERS Safety Report 6998517-9 (Version None)
Quarter: 2010Q3

REPORT INFORMATION
  Report Type: 
  Country: None (occurrence: None)
  Receive Date: 20100920
  Receipt Date: 20070627
  Transmission Date: 20110219
  Serious: Yes (Other)
  Sender: FDA-Public Use
  Company Number: US-ASTRAZENECA-2006UW24990

PATIENT
  Age: 12354 Day
  Sex: Female
  Weight: 77.6 kg

DRUGS (8)
  1. SEROQUEL [Suspect]
     Indication: MENTAL DISORDER
     Dosage: 75-400 MG
     Route: 048
     Dates: start: 20030208
  2. SEROQUEL [Suspect]
     Route: 048
  3. RISPERDAL [Suspect]
     Dosage: 1 MG EVERY MORNING, 3 MG EVERY NIGHT
     Route: 048
     Dates: start: 20020411
  4. CYMBALTA [Concomitant]
     Dates: start: 20060911
  5. EFFEXOR XR [Concomitant]
     Dosage: 75 MG DAILY, 300 MG EVERY MORNING
     Route: 048
     Dates: start: 20040611
  6. ZOLOFT [Concomitant]
     Dates: start: 20020411
  7. GLUCOPHAGE [Concomitant]
     Dates: start: 20071005
  8. PROZAC [Concomitant]
     Dates: start: 20030208

REACTIONS (2)
  - HYPOGLYCAEMIA [None]
  - TYPE 2 DIABETES MELLITUS [None]
